FAERS Safety Report 10671979 (Version 2)
Quarter: 2016Q1

REPORT INFORMATION
  Report Type: Spontaneous
  Country: US (occurrence: US)
  Receive Date: 20141223
  Receipt Date: 20160114
  Transmission Date: 20160525
  Serious: No
  Sender: FDA-Public Use
  Company Number: US-PFIZER INC-2014345288

PATIENT
  Age: 57 Year
  Sex: Female
  Weight: 66 kg

DRUGS (4)
  1. PROTONIX [Suspect]
     Active Substance: PANTOPRAZOLE SODIUM
     Indication: GASTRIC DISORDER
     Dosage: 40 MG, 1X/DAY
     Route: 048
     Dates: start: 2011
  2. BUTAL/TYLENOL/CAFFEINE [Concomitant]
     Indication: HEADACHE
     Dosage: UNK (BUTAL 50MG / TYLENOL 325MG /CAFFEINE 40MG )
  3. PROTONIX [Suspect]
     Active Substance: PANTOPRAZOLE SODIUM
     Dosage: 40 MG, 2X/DAY
     Route: 048
  4. BACLOFEN. [Concomitant]
     Active Substance: BACLOFEN
     Dosage: 20 MG, UNK

REACTIONS (3)
  - Abdominal distension [Recovering/Resolving]
  - Dyspepsia [Recovering/Resolving]
  - Nausea [Recovering/Resolving]

NARRATIVE: CASE EVENT DATE: 201410
